FAERS Safety Report 11226914 (Version 1)
Quarter: 2015Q2

REPORT INFORMATION
  Report Type: Spontaneous
  Country: CH (occurrence: CH)
  Receive Date: 20150630
  Receipt Date: 20150630
  Transmission Date: 20150821
  Serious: Yes (Hospitalization)
  Sender: FDA-Public Use
  Company Number: PHHY2015CH074000

PATIENT

DRUGS (3)
  1. ZYLORIC [Suspect]
     Active Substance: ALLOPURINOL
     Indication: PRODUCT USED FOR UNKNOWN INDICATION
     Dosage: 50 MG, QD
     Route: 048
     Dates: end: 201504
  2. RIMSTAR [Suspect]
     Active Substance: ETHAMBUTOL\ISONIAZID\PYRAZINAMIDE\RIFAMYCIN
     Indication: PRODUCT USED FOR UNKNOWN INDICATION
     Dosage: 4 DF, QD
     Route: 065
     Dates: start: 20150113, end: 20150314
  3. RIFINAH [Suspect]
     Active Substance: ISONIAZID\RIFAMPIN
     Indication: PRODUCT USED FOR UNKNOWN INDICATION
     Dosage: 4 DF, QD
     Route: 048
     Dates: start: 20150315, end: 201504

REACTIONS (5)
  - Leukocyturia [Recovered/Resolved]
  - Acute kidney injury [Recovering/Resolving]
  - Hepatic enzyme increased [Recovering/Resolving]
  - Haematuria [Recovered/Resolved]
  - Proteinuria [Recovering/Resolving]

NARRATIVE: CASE EVENT DATE: 201504
